FAERS Safety Report 7254899-4 (Version None)
Quarter: 2011Q1

REPORT INFORMATION
  Report Type: 
  Country: None (occurrence: None)
  Receive Date: 20110129
  Receipt Date: 20100222
  Transmission Date: 20110831
  Serious: No
  Sender: FDA-Public Use
  Company Number: US-ABBOTT-10P-163-0628683-00

PATIENT
  Sex: Female
  Weight: 93.524 kg

DRUGS (1)
  1. HUMIRA [Suspect]
     Indication: PSORIASIS
     Dosage: ON HOLD
     Dates: start: 20080101, end: 20100118

REACTIONS (5)
  - COUGH [None]
  - NASOPHARYNGITIS [None]
  - PSORIASIS [None]
  - PYREXIA [None]
  - DYSPHONIA [None]
